FAERS Safety Report 21644733 (Version 1)
Quarter: 2022Q4

REPORT INFORMATION
  Report Type: Spontaneous
  Country: DE (occurrence: DE)
  Receive Date: 20221125
  Receipt Date: 20221125
  Transmission Date: 20230113
  Serious: Yes (Other)
  Sender: FDA-Public Use
  Company Number: None

PATIENT
  Sex: Male

DRUGS (2)
  1. ESCITALOPRAM OXALATE [Suspect]
     Active Substance: ESCITALOPRAM OXALATE
     Indication: Depression
     Dosage: 20 MG
     Dates: end: 202201
  2. ESCITALOPRAM OXALATE [Suspect]
     Active Substance: ESCITALOPRAM OXALATE
     Dosage: 10 MG
     Dates: start: 2004

REACTIONS (101)
  - Blindness transient [Unknown]
  - Arrhythmia [Unknown]
  - Deafness transitory [Unknown]
  - Loss of personal independence in daily activities [Not Recovered/Not Resolved]
  - Hyperacusis [Unknown]
  - Electric shock sensation [Unknown]
  - Hyperphagia [Unknown]
  - Gastrointestinal disorder [Unknown]
  - Anhedonia [Unknown]
  - Psychomotor hyperactivity [Unknown]
  - Night sweats [Unknown]
  - Pustule [Recovered/Resolved]
  - Blood pressure diastolic increased [Unknown]
  - Language disorder [Unknown]
  - Balance disorder [Not Recovered/Not Resolved]
  - Blood pressure fluctuation [Unknown]
  - Crying [Unknown]
  - Swelling face [Unknown]
  - Compulsive shopping [Unknown]
  - Pruritus [Recovered/Resolved]
  - Chills [Unknown]
  - Memory impairment [Unknown]
  - Taste disorder [Unknown]
  - Derealisation [Unknown]
  - Dry eye [Unknown]
  - Sleep disorder [Recovering/Resolving]
  - Paraesthesia [Unknown]
  - Myalgia [Not Recovered/Not Resolved]
  - Abdominal discomfort [Unknown]
  - Withdrawal syndrome [Unknown]
  - Oedema peripheral [Unknown]
  - Rhinorrhoea [Unknown]
  - Paraesthesia [Unknown]
  - Salivary hypersecretion [Unknown]
  - Acrophobia [Unknown]
  - Emotional poverty [Not Recovered/Not Resolved]
  - Disturbance in attention [Not Recovered/Not Resolved]
  - Decreased activity [Unknown]
  - Mania [Unknown]
  - Food craving [Unknown]
  - Sick leave [Not Recovered/Not Resolved]
  - Muscle twitching [Unknown]
  - Cardiovascular disorder [Unknown]
  - Headache [Unknown]
  - Formication [Unknown]
  - Swelling [Unknown]
  - Photopsia [Unknown]
  - Emotional disorder [Unknown]
  - Fine motor skill dysfunction [Unknown]
  - Pulse abnormal [Unknown]
  - Suicidal ideation [Unknown]
  - Anxiety [Unknown]
  - Palpitations [Unknown]
  - Migraine [Unknown]
  - Hypoaesthesia [Unknown]
  - Vision blurred [Unknown]
  - Feeling abnormal [Unknown]
  - Tinnitus [Not Recovered/Not Resolved]
  - Dyskinesia [Unknown]
  - Amnesia [Unknown]
  - Nausea [Unknown]
  - Hyperhidrosis [Unknown]
  - Dysarthria [Unknown]
  - Feeling abnormal [Unknown]
  - Dysuria [Unknown]
  - Decreased appetite [Unknown]
  - Panic attack [Unknown]
  - Nasal congestion [Unknown]
  - Influenza like illness [Unknown]
  - Depersonalisation/derealisation disorder [Unknown]
  - Anger [Unknown]
  - Diarrhoea [Unknown]
  - Nervousness [Unknown]
  - Disorientation [Unknown]
  - Confusional state [Unknown]
  - Constipation [Unknown]
  - Visual impairment [Unknown]
  - Initial insomnia [Unknown]
  - Aggression [Unknown]
  - Sexual dysfunction [Unknown]
  - Malaise [Unknown]
  - Anxiety [Unknown]
  - Asthenia [Unknown]
  - Dyspepsia [Unknown]
  - Blood cholesterol increased [Unknown]
  - Apathy [Unknown]
  - Weight increased [Unknown]
  - Arthralgia [Unknown]
  - Musculoskeletal stiffness [Unknown]
  - Dyspepsia [Unknown]
  - Hypoaesthesia [Unknown]
  - Agitation [Unknown]
  - Somnolence [Not Recovered/Not Resolved]
  - Dyspnoea [Unknown]
  - Gait disturbance [Unknown]
  - Hyperhidrosis [Unknown]
  - Dry mouth [Unknown]
  - Dizziness [Not Recovered/Not Resolved]
  - Abdominal pain [Not Recovered/Not Resolved]
  - Pain in extremity [Unknown]
  - Fatigue [Unknown]

NARRATIVE: CASE EVENT DATE: 20040101
